FAERS Safety Report 25350766 (Version 1)
Quarter: 2025Q2

REPORT INFORMATION
  Report Type: Spontaneous
  Country: US (occurrence: US)
  Receive Date: 20250523
  Receipt Date: 20250523
  Transmission Date: 20250716
  Serious: No
  Sender: TEVA
  Company Number: US-TEVA-VS-3332430

PATIENT
  Age: 70 Year
  Sex: Female

DRUGS (1)
  1. AUSTEDO [Suspect]
     Active Substance: DEUTETRABENAZINE
     Indication: Tardive dyskinesia
     Dosage: 4 TABLETS
     Route: 065

REACTIONS (4)
  - Gingival ulceration [Unknown]
  - Symptom recurrence [Unknown]
  - Feeding disorder [Unknown]
  - Overdose [Unknown]
